FAERS Safety Report 10241993 (Version 2)
Quarter: 2014Q3

REPORT INFORMATION
  Report Type: Spontaneous
  Country: US (occurrence: US)
  Receive Date: 20140617
  Receipt Date: 20140804
  Transmission Date: 20150326
  Serious: No
  Sender: FDA-Public Use
  Company Number: US-BAYER-2014-089830

PATIENT
  Sex: Female
  Weight: 68.48 kg

DRUGS (8)
  1. VITAMIN D3 [Concomitant]
     Active Substance: CHOLECALCIFEROL
     Dosage: 5000 IU, QD
  2. PROTOPIC [Concomitant]
     Active Substance: TACROLIMUS
     Dosage: UNK UNK, PRN
     Route: 061
  3. CLIMARA [Suspect]
     Active Substance: ESTRADIOL
     Indication: HORMONE REPLACEMENT THERAPY
     Dosage: 1 DF, OW
     Dates: start: 20140601
  4. CLIMARA [Suspect]
     Active Substance: ESTRADIOL
     Indication: MENOPAUSAL SYMPTOMS
  5. OMEGA-3 [DOCOSAHEXANOIC ACID,EICOSAPENTAENOIC ACID] [Concomitant]
     Dosage: 1 DF, QD
  6. MAGNESIUM [MAGNESIUM] [Concomitant]
  7. FLUTICASONE [Concomitant]
     Active Substance: FLUTICASONE\FLUTICASONE PROPIONATE
     Dosage: 100 ?G, PRN
     Route: 045
  8. ALLEGRA [Concomitant]
     Active Substance: FEXOFENADINE HYDROCHLORIDE
     Dosage: UNK UNK, PRN

REACTIONS (2)
  - Product adhesion issue [None]
  - Application site pruritus [None]
